FAERS Safety Report 21816237 (Version 1)
Quarter: 2023Q1

REPORT INFORMATION
  Report Type: Spontaneous
  Country: US (occurrence: None)
  Receive Date: 20230103
  Receipt Date: 20230103
  Transmission Date: 20230418
  Serious: No
  Sender: FDA-Public Use
  Company Number: None

PATIENT
  Age: 64 Year
  Sex: Male

DRUGS (1)
  1. TOBRAMYCIN [Suspect]
     Active Substance: TOBRAMYCIN
     Dosage: OTHER FREQUENCY : OTHER;?
     Route: 058
     Dates: start: 202204

REACTIONS (2)
  - Asthma [None]
  - Therapy change [None]

NARRATIVE: CASE EVENT DATE: 20230103
